FAERS Safety Report 20303352 (Version 6)
Quarter: 2024Q4

REPORT INFORMATION
  Report Type: Spontaneous
  Country: PL (occurrence: PL)
  Receive Date: 20220106
  Receipt Date: 20241127
  Transmission Date: 20250115
  Serious: Yes (Hospitalization, Other)
  Sender: AUROBINDO
  Company Number: PL-PFM-2021-12122

PATIENT
  Age: 30 Year
  Sex: Female

DRUGS (21)
  1. ACYCLOVIR [Suspect]
     Active Substance: ACYCLOVIR
     Indication: Pyoderma gangrenosum
     Dosage: UNK
     Route: 065
  2. ACYCLOVIR [Suspect]
     Active Substance: ACYCLOVIR
     Dosage: 4 MILLICURIE PER KILOGRAM, ONCE A DAY
     Route: 065
  3. CYCLOSPORINE [Suspect]
     Active Substance: CYCLOSPORINE
     Indication: Pyoderma gangrenosum
     Dosage: 4 MILLIGRAM/KILOGRAM, ONCE A DAY4 MG/KG, QD (1/DAY)
     Route: 065
  4. CYCLOSPORINE [Suspect]
     Active Substance: CYCLOSPORINE
     Dosage: 3 MILLIGRAM/KILOGRAM, ONCE A DAY
     Route: 065
  5. PANTOPRAZOLE [Suspect]
     Active Substance: PANTOPRAZOLE
     Indication: Pyoderma gangrenosum
     Dosage: 20 MILLIGRAM, ONCE A DAY(20 MG, QD (1/DAY))
     Route: 065
  6. CEFTRIAXONE [Suspect]
     Active Substance: CEFTRIAXONE
     Indication: Pyoderma gangrenosum
     Dosage: 2 GRAM, ONCE A DAY
     Route: 065
  7. CLOBETASOL PROPIONATE [Suspect]
     Active Substance: CLOBETASOL PROPIONATE
     Indication: Pyoderma gangrenosum
     Dosage: UNK
     Route: 061
  8. DEXAMETHASONE [Suspect]
     Active Substance: DEXAMETHASONE
     Indication: Pyoderma gangrenosum
     Dosage: 12 MILLIGRAM, ONCE A DAY
     Route: 042
  9. DEXAMETHASONE [Suspect]
     Active Substance: DEXAMETHASONE
     Dosage: DOSE WAS GRADUALLY REDUCED
     Route: 042
  10. MUPIROCIN [Suspect]
     Active Substance: MUPIROCIN
     Indication: Pyoderma gangrenosum
     Dosage: UNK
     Route: 061
  11. NADROPARIN [Suspect]
     Active Substance: NADROPARIN
     Indication: Coagulopathy
     Dosage: 5700 INTERNATIONAL UNIT, ONCE A DAY(5700 IU, QD (1/DAY))
     Route: 065
  12. NADROPARIN [Suspect]
     Active Substance: NADROPARIN
     Indication: Pyoderma gangrenosum
  13. SODIUM CHLORIDE [Suspect]
     Active Substance: SODIUM CHLORIDE
     Indication: Pyoderma gangrenosum
     Dosage: UNK
     Route: 061
  14. METHYLPREDNISOLONE [Suspect]
     Active Substance: METHYLPREDNISOLONE
     Indication: Pyoderma gangrenosum
     Dosage: 12 MILLIGRAM, DAILY
     Route: 065
  15. ETHAMSYLATE [Suspect]
     Active Substance: ETHAMSYLATE
     Indication: Pyoderma gangrenosum
     Dosage: UNK
     Route: 065
  16. SULFAMETHOXAZOLE [Suspect]
     Active Substance: SULFAMETHOXAZOLE
     Indication: Product used for unknown indication
     Dosage: UNK
     Route: 065
  17. SULFAMETHOXAZOLE\TRIMETHOPRIM [Suspect]
     Active Substance: SULFAMETHOXAZOLE\TRIMETHOPRIM
     Indication: Pyoderma gangrenosum
     Dosage: UNK
     Route: 065
  18. TRIMETHOPRIM [Suspect]
     Active Substance: TRIMETHOPRIM
     Indication: Product used for unknown indication
     Dosage: UNK
     Route: 065
  19. CLOBETASOL [Suspect]
     Active Substance: CLOBETASOL
     Indication: Pyoderma gangrenosum
     Dosage: UNK
     Route: 061
  20. MESALAMINE [Concomitant]
     Active Substance: MESALAMINE
     Indication: Colitis ulcerative
     Dosage: UNK
     Route: 065
  21. MESALAMINE [Concomitant]
     Active Substance: MESALAMINE
     Indication: Pyoderma gangrenosum

REACTIONS (5)
  - Drug ineffective [Recovering/Resolving]
  - Diarrhoea [Unknown]
  - Colitis ulcerative [Unknown]
  - Off label use [Unknown]
  - Product use in unapproved indication [Unknown]
